FAERS Safety Report 17034267 (Version 2)
Quarter: 2019Q4

REPORT INFORMATION
  Report Type: Spontaneous
  Country: US (occurrence: US)
  Receive Date: 20191114
  Receipt Date: 20191230
  Transmission Date: 20200122
  Serious: No
  Sender: FDA-Public Use
  Company Number: US-ASTRAZENECA-2019SF51933

PATIENT
  Sex: Female

DRUGS (1)
  1. SYMBICORT [Suspect]
     Active Substance: BUDESONIDE\FORMOTEROL FUMARATE DIHYDRATE
     Dosage: 160/4.5 MCG 120 INHALATIONS TWO TIMES A DAY
     Route: 055

REACTIONS (4)
  - Product packaging quantity issue [Unknown]
  - Wheezing [Unknown]
  - Cough [Unknown]
  - Drug delivery system issue [Unknown]
